FAERS Safety Report 4525956-8 (Version None)
Quarter: 2004Q4

REPORT INFORMATION
  Report Type: 
  Country: None (occurrence: None)
  Receive Date: 20041213
  Receipt Date: 20041213
  Transmission Date: 20050328
  Serious: Yes (Disabling)
  Sender: FDA-Public Use
  Company Number: None

PATIENT
  Sex: Male
  Weight: 86.1834 kg

DRUGS (9)
  1. LIPITOR [Suspect]
     Indication: BLOOD CHOLESTEROL INCREASED
     Dosage: DAILY ORAL
     Route: 048
  2. LIPITOR [Suspect]
     Indication: LOW DENSITY LIPOPROTEIN INCREASED
     Dosage: DAILY ORAL
     Route: 048
  3. ALLOPURINOL [Concomitant]
  4. TOPROL-XL [Concomitant]
  5. COZAAR [Concomitant]
  6. HYDROCHLOROTHIAZIDE [Concomitant]
  7. FLOMAX [Concomitant]
  8. NIACIN [Concomitant]
  9. LIPITOR [Concomitant]

REACTIONS (5)
  - BACK PAIN [None]
  - DIFFICULTY IN WALKING [None]
  - MOVEMENT DISORDER [None]
  - MUSCLE CRAMP [None]
  - PAIN IN EXTREMITY [None]
